FAERS Safety Report 5157235-2 (Version None)
Quarter: 2006Q4

REPORT INFORMATION
  Report Type: 
  Country: None (occurrence: None)
  Receive Date: 20061127
  Receipt Date: 20061113
  Transmission Date: 20070319
  Serious: Yes (Hospitalization)
  Sender: FDA-Public Use
  Company Number: PHRM2006FR03053

PATIENT
  Age: 25 Year
  Sex: Male

DRUGS (3)
  1. NEORAL [Suspect]
     Indication: COLITIS
     Dosage: UNK, UNK
     Route: 048
     Dates: end: 20060601
  2. IMUREL [Suspect]
     Indication: COLITIS
     Route: 048
  3. BACTRIM [Suspect]
     Indication: COLITIS

REACTIONS (3)
  - BONE PAIN [None]
  - EOSINOPHILIA [None]
  - MYALGIA [None]
